FAERS Safety Report 8351066-8 (Version None)
Quarter: 2012Q2

REPORT INFORMATION
  Report Type: 
  Country: None (occurrence: None)
  Receive Date: 20120510
  Receipt Date: 20120502
  Transmission Date: 20120825
  Serious: Yes (Death, Hospitalization)
  Sender: FDA-Public Use
  Company Number: US-MPIJNJ-2012-01736

PATIENT
  Age: 18 Year
  Sex: Male
  Weight: 126.4 kg

DRUGS (8)
  1. PEGASPARGASE [Suspect]
     Indication: B PRECURSOR TYPE ACUTE LEUKAEMIA
     Dosage: 2500 IU, CYCLIC
     Dates: start: 20120225, end: 20120302
  2. VELCADE [Suspect]
     Indication: B PRECURSOR TYPE ACUTE LEUKAEMIA
     Dosage: 1.3 MG/M2, CYCLIC
     Route: 040
     Dates: start: 20120224, end: 20120302
  3. VINCRISTINE [Suspect]
     Indication: B PRECURSOR TYPE ACUTE LEUKAEMIA
     Dosage: 2 MG, CYCLIC
     Route: 040
     Dates: start: 20120224, end: 20120302
  4. PREDNISONE TAB [Suspect]
     Indication: B PRECURSOR TYPE ACUTE LEUKAEMIA
     Dosage: 50 MG, BID
     Route: 048
     Dates: start: 20120224, end: 20120304
  5. METHOTREXATE [Suspect]
     Indication: B PRECURSOR TYPE ACUTE LEUKAEMIA
     Dosage: UNK
     Route: 037
  6. HYDROCORTISONE [Suspect]
     Indication: B PRECURSOR TYPE ACUTE LEUKAEMIA
     Dosage: UNK
  7. CYTARABINE [Suspect]
     Indication: B PRECURSOR TYPE ACUTE LEUKAEMIA
     Dosage: 70 MG, CYCLIC
     Route: 037
     Dates: start: 20120224
  8. DOXORUBICIN HCL [Suspect]
     Indication: B PRECURSOR TYPE ACUTE LEUKAEMIA
     Dosage: 60 MG/M2, CYCLIC
     Route: 042
     Dates: start: 20120224, end: 20120224

REACTIONS (8)
  - PLATELET COUNT DECREASED [None]
  - ABDOMINAL PAIN [None]
  - CAPILLARY LEAK SYNDROME [None]
  - ACIDOSIS [None]
  - HYPOTENSION [None]
  - HYPONATRAEMIA [None]
  - SEPSIS [None]
  - WHITE BLOOD CELL COUNT DECREASED [None]
